FAERS Safety Report 15266571 (Version 7)
Quarter: 2020Q1

REPORT INFORMATION
  Report Type: Spontaneous
  Country: US (occurrence: US)
  Receive Date: 20180810
  Receipt Date: 20200127
  Transmission Date: 20200409
  Serious: No
  Sender: FDA-Public Use
  Company Number: US-PFIZER INC-2018281321

PATIENT
  Age: 51 Year
  Sex: Female
  Weight: 79 kg

DRUGS (7)
  1. PROPRANOLOL [Concomitant]
     Active Substance: PROPRANOLOL HYDROCHLORIDE
     Indication: HYPERTENSION
     Dosage: 20 MG, 2X/DAY (20 MG TABLET IN THE MORNING AND EVENING BY MOUTH)
     Route: 048
  2. LYRICA [Suspect]
     Active Substance: PREGABALIN
     Indication: BURNING SENSATION
     Dosage: 200 MG, TWICE A DAY
     Route: 048
     Dates: start: 2014
  3. LYRICA [Suspect]
     Active Substance: PREGABALIN
     Indication: DIABETES MELLITUS
     Dosage: 100 MG, TWICE DAILY (TWO 50 MG CAPSULES)
     Route: 048
     Dates: start: 201806, end: 201807
  4. LYRICA [Suspect]
     Active Substance: PREGABALIN
     Dosage: 100 MG, TWICE DAILY (ONE IN THE MORNING AND ONE IN THE AFTERNOON)
     Route: 048
  5. METFORMIN [Concomitant]
     Active Substance: METFORMIN HYDROCHLORIDE
     Indication: DIABETES MELLITUS
     Dosage: 500 MG, 2X/DAY
     Route: 048
  6. LYRICA [Suspect]
     Active Substance: PREGABALIN
     Indication: POLYNEUROPATHY
     Dosage: 100 MG, TWICE DAILY
     Route: 048
     Dates: start: 2016
  7. FARXIGA [Concomitant]
     Active Substance: DAPAGLIFLOZIN PROPANEDIOL
     Indication: DIABETES MELLITUS
     Dosage: 10 MG, 1X/DAY (10 MG TABLET IN THE MORNING)

REACTIONS (4)
  - Intentional product use issue [Unknown]
  - Pain [Unknown]
  - Malaise [Unknown]
  - Fatigue [Unknown]
